FAERS Safety Report 9504255 (Version 1)
Quarter: 2013Q3

REPORT INFORMATION
  Report Type: Spontaneous
  Country: ES (occurrence: ES)
  Receive Date: 20130906
  Receipt Date: 20130906
  Transmission Date: 20140515
  Serious: Yes (Other)
  Sender: FDA-Public Use
  Company Number: ES-GLAXOSMITHKLINE-B0920317A

PATIENT
  Age: 68 Year
  Sex: Male
  Weight: 97 kg

DRUGS (5)
  1. INALADUO [Suspect]
     Indication: EMPHYSEMA
     Route: 055
     Dates: start: 2010, end: 20130729
  2. SIMVASTATINA [Suspect]
     Indication: PRODUCT USED FOR UNKNOWN INDICATION
     Route: 048
     Dates: start: 20130725
  3. METFORMINA [Suspect]
     Indication: PRODUCT USED FOR UNKNOWN INDICATION
     Route: 048
     Dates: start: 20130725
  4. ACOVIL [Suspect]
     Indication: PRODUCT USED FOR UNKNOWN INDICATION
     Route: 048
     Dates: start: 20130725
  5. COROPRES [Suspect]
     Indication: PRODUCT USED FOR UNKNOWN INDICATION
     Route: 048
     Dates: start: 20130725

REACTIONS (2)
  - Angioedema [Recovered/Resolved]
  - Anaphylactic shock [Recovered/Resolved]
